FAERS Safety Report 8612834 (Version 2)
Quarter: 2012Q4

REPORT INFORMATION
  Report Type: 
  Country: US (occurrence: US)
  Receive Date: 20120613
  Receipt Date: 20121009
  Transmission Date: 20130627
  Serious: Yes (Other)
  Sender: FDA-Public Use
  Company Number: US-BAYER-2012-058177

PATIENT
  Age: 51 Year
  Sex: Female
  Weight: 61.22 kg

DRUGS (1)
  1. MAGNEVIST [Suspect]
     Dosage: 12 ml, ONCE
     Dates: start: 20120611, end: 20120611

REACTIONS (3)
  - Presyncope [Recovered/Resolved]
  - Urticaria [Recovered/Resolved]
  - Pruritus [Recovered/Resolved]
